FAERS Safety Report 5756551-0 (Version None)
Quarter: 2008Q2

REPORT INFORMATION
  Report Type: 
  Country: None (occurrence: None)
  Receive Date: 20080603
  Receipt Date: 20080521
  Transmission Date: 20081010
  Serious: Yes (Other)
  Sender: FDA-Public Use
  Company Number: PHHY2008CA03791

PATIENT
  Sex: Female

DRUGS (7)
  1. DIOVAN T30230++HY [Suspect]
     Indication: HYPERTENSION
     Dosage: 80 MG
     Route: 048
     Dates: start: 20070110
  2. OXYCODONE HCL [Concomitant]
     Dosage: 325 MG, TID
  3. CELEBREX [Concomitant]
  4. ACTONEL [Concomitant]
     Dosage: 300
  5. LIPITOR [Concomitant]
     Dosage: UNK
  6. MONOCOR [Concomitant]
     Dosage: 5 MG
  7. AMILZIDE [Concomitant]
     Dosage: 5/50

REACTIONS (5)
  - FALL [None]
  - FATIGUE [None]
  - FLUID RETENTION [None]
  - HYPOTENSION [None]
  - WEIGHT BEARING DIFFICULTY [None]
